FAERS Safety Report 9295376 (Version 1)
Quarter: 2013Q1

REPORT INFORMATION
  Report Type: Spontaneous
  Country: US (occurrence: None)
  Receive Date: 20121227
  Receipt Date: 20121227
  Transmission Date: 20140127
  Serious: No
  Sender: FDA-Public Use
  Company Number: PHEH2012US018045

PATIENT
  Age: 9 Year
  Sex: Male

DRUGS (2)
  1. AFINITOR [Suspect]
     Indication: TUBEROUS SCLEROSIS
     Route: 048
     Dates: start: 20120822
  2. LAMICTAL (LAMOTRIGINE) [Concomitant]

REACTIONS (3)
  - Headache [None]
  - Oedema peripheral [None]
  - Rash [None]
